FAERS Safety Report 5406154-2 (Version None)
Quarter: 2007Q3

REPORT INFORMATION
  Report Type: 
  Country: None (occurrence: None)
  Receive Date: 20070801
  Receipt Date: 20070713
  Transmission Date: 20080115
  Serious: Yes (Other)
  Sender: FDA-Public Use
  Company Number: ENTC2007-0195

PATIENT
  Age: 68 Year
  Sex: Male

DRUGS (3)
  1. LEVODOPA-CARBIDOPA-ENTACAPONE (LEVODOPA, CARBIDOPA, ENTACAPONE) [Suspect]
     Indication: PARKINSON'S DISEASE
  2. AMANTADINE HCL [Suspect]
     Indication: PARKINSON'S DISEASE
  3. ROPINIROLE HCL [Suspect]
     Indication: PARKINSON'S DISEASE

REACTIONS (4)
  - BRADYKINESIA [None]
  - DYSKINESIA [None]
  - MUSCLE RIGIDITY [None]
  - PARKINSONIAN REST TREMOR [None]
